FAERS Safety Report 4343027-0 (Version None)
Quarter: 2004Q2

REPORT INFORMATION
  Report Type: 
  Country: None (occurrence: None)
  Receive Date: 20040416
  Receipt Date: 20011127
  Transmission Date: 20050107
  Serious: No
  Sender: FDA-Public Use
  Company Number: 20011047BFR

PATIENT
  Age: 55 Year
  Sex: Female
  Weight: 78 kg

DRUGS (3)
  1. CIPROFLOXACIN [Suspect]
     Indication: ANTHRAX
     Dosage: 1 G, TOTAL DAILY, ORAL
     Route: 048
     Dates: start: 20011016
  2. CIPROFLOXACIN [Suspect]
     Indication: PROPHYLAXIS
     Dosage: 1 G, TOTAL DAILY, ORAL
     Route: 048
     Dates: start: 20011016
  3. VOGALENE [Concomitant]

REACTIONS (5)
  - ARTHRALGIA [None]
  - HEADACHE [None]
  - INSOMNIA [None]
  - MYALGIA [None]
  - NECK PAIN [None]
